FAERS Safety Report 8144316-4 (Version None)
Quarter: 2012Q1

REPORT INFORMATION
  Report Type: 
  Country: None (occurrence: None)
  Receive Date: 20120214
  Receipt Date: 20120202
  Transmission Date: 20120608
  Serious: Yes (Other)
  Sender: FDA-Public Use
  Company Number: 1183581

PATIENT
  Sex: Female
  Weight: 58 kg

DRUGS (1)
  1. CARBOPLATIN [Suspect]
     Indication: PRODUCT USED FOR UNKNOWN INDICATION
     Dosage: 2, UNKNOWN,

REACTIONS (6)
  - TACHYCARDIA [None]
  - CHEST DISCOMFORT [None]
  - RASH [None]
  - HYPERSENSITIVITY [None]
  - OEDEMA PERIPHERAL [None]
  - FLUSHING [None]
